FAERS Safety Report 8840952 (Version 2)
Quarter: 2014Q2

REPORT INFORMATION
  Report Type: Spontaneous
  Country: US (occurrence: US)
  Receive Date: 20121015
  Receipt Date: 20131018
  Transmission Date: 20141212
  Serious: Yes (Hospitalization, Other)
  Sender: FDA-Public Use
  Company Number: US-PFIZER INC-2012250642

PATIENT
  Age: 13 Month
  Sex: Female

DRUGS (3)
  1. MESUXIMIDE [Suspect]
     Indication: MYOCLONIC EPILEPSY
     Dosage: 300 MG, 3X/DAY
  2. PHENYTOIN [Suspect]
     Indication: MYOCLONIC EPILEPSY
     Dosage: 30 MG, 4X/DAY
  3. PHENOBARBITAL [Suspect]
     Indication: MYOCLONIC EPILEPSY
     Dosage: 8 MG, 4X/DAY

REACTIONS (2)
  - Coma [Unknown]
  - Pulmonary congestion [Unknown]
